FAERS Safety Report 7806266-X (Version None)
Quarter: 2011Q4

REPORT INFORMATION
  Report Type: 
  Country: None (occurrence: None)
  Receive Date: 20111011
  Receipt Date: 20110930
  Transmission Date: 20120403
  Serious: Yes (Death, Disabling, Other)
  Sender: FDA-Public Use
  Company Number: JP-JNJFOC-20110506753

PATIENT
  Sex: Female

DRUGS (11)
  1. ZONISAMIDE [Concomitant]
     Indication: CEREBRAL HAEMORRHAGE
     Route: 048
     Dates: end: 20110413
  2. SEROQUEL [Suspect]
     Indication: SCHIZOPHRENIA
     Route: 048
     Dates: start: 20110101, end: 20110408
  3. DIOVAN [Concomitant]
     Indication: HYPERTENSION
     Route: 048
     Dates: end: 20110413
  4. UNASYN [Concomitant]
     Indication: PNEUMONIA
     Route: 042
     Dates: start: 20110329, end: 20110405
  5. RISPERDAL [Suspect]
     Indication: SCHIZOPHRENIA
     Route: 048
     Dates: start: 20110101, end: 20110408
  6. ROCEPHIN [Concomitant]
     Indication: PNEUMONIA
     Route: 042
     Dates: start: 20110405, end: 20110413
  7. LASIX [Concomitant]
     Route: 065
     Dates: start: 20110423, end: 20110423
  8. OMEPRAZOLE [Concomitant]
     Route: 065
     Dates: start: 20110414, end: 20110421
  9. UNKNOWN MEDICATION [Suspect]
     Indication: PRODUCT USED FOR UNKNOWN INDICATION
     Route: 065
  10. LASIX [Concomitant]
     Route: 065
     Dates: start: 20110421, end: 20110421
  11. OMEPRAZOLE [Concomitant]
     Route: 065
     Dates: start: 20110423, end: 20110423

REACTIONS (1)
  - HYPOGLYCAEMIA [None]
